FAERS Safety Report 16231120 (Version 1)
Quarter: 2019Q2

REPORT INFORMATION
  Report Type: Spontaneous
  Country: US (occurrence: US)
  Receive Date: 20190424
  Receipt Date: 20190424
  Transmission Date: 20190711
  Serious: No
  Sender: FDA-Public Use
  Company Number: US-ASTRAZENECA-2019SE49281

PATIENT
  Sex: Female
  Weight: 74.8 kg

DRUGS (3)
  1. BUDESONIDE  INHALATION [Suspect]
     Active Substance: BUDESONIDE
     Indication: ASTHMA
     Dosage: 0.5MG/2 ML,TWICE A DAY
     Route: 055
  2. SYMBICORT [Suspect]
     Active Substance: BUDESONIDE\FORMOTEROL FUMARATE DIHYDRATE
     Indication: ASTHMA
     Dosage: 160/4.5 MCG ONE PUFF TWICE A DAY
     Route: 055
  3. BUDESONIDE  INHALATION [Suspect]
     Active Substance: BUDESONIDE
     Indication: ASTHMA
     Dosage: 0.5MG/2 ML,DAILY
     Route: 055

REACTIONS (8)
  - Dyspnoea [Not Recovered/Not Resolved]
  - Presyncope [Unknown]
  - Swelling face [Unknown]
  - Pruritus [Unknown]
  - Product dose omission [Unknown]
  - Chest pain [Unknown]
  - Spinal cord disorder [Unknown]
  - Hypersensitivity [Unknown]
